FAERS Safety Report 12838852 (Version 2)
Quarter: 2018Q1

REPORT INFORMATION
  Report Type: Spontaneous
  Country: US (occurrence: US)
  Receive Date: 20161012
  Receipt Date: 20180301
  Transmission Date: 20180508
  Serious: No
  Sender: FDA-Public Use
  Company Number: US-PFIZER INC-2016466826

PATIENT
  Sex: Male
  Weight: 69 kg

DRUGS (3)
  1. CARVEDILOL. [Concomitant]
     Active Substance: CARVEDILOL
     Indication: CARDIAC FAILURE
     Dosage: 37.5 MG, 2X/DAY
  2. INSPRA [Concomitant]
     Active Substance: EPLERENONE
     Dosage: UNK
  3. TIKOSYN [Suspect]
     Active Substance: DOFETILIDE
     Indication: ATRIAL FIBRILLATION
     Dosage: 125 MG, 2X/DAY
     Route: 048
     Dates: start: 2009, end: 2012

REACTIONS (1)
  - Drug effect incomplete [Unknown]
